FAERS Safety Report 17668681 (Version 5)
Quarter: 2021Q4

REPORT INFORMATION
  Report Type: Report from Study
  Country: ES (occurrence: None)
  Receive Date: 20200415
  Receipt Date: 20211118
  Transmission Date: 20220304
  Serious: Yes (Death, Hospitalization)
  Sender: FDA-Public Use
  Company Number: ES-ROCHE-2504231

PATIENT
  Age: 66 Year
  Sex: Male
  Weight: 54 kg

DRUGS (24)
  1. ATEZOLIZUMAB [Suspect]
     Active Substance: ATEZOLIZUMAB
     Indication: Non-small cell lung cancer
     Dosage: LATEST DOSE OF ATEZOLIZUMAB RECEIVED PRIOR TO BACTEREMIA AND WORSENING OF CHRONIC ISCHEMIA ON 09/DEC
     Route: 042
  2. PEMETREXED [Suspect]
     Active Substance: PEMETREXED
     Indication: Non-small cell lung cancer
     Dosage: LATEST DOSE OF PEMETREXED RECEIVED PRIOR TO BACTEREMIA ON 09/DEC/2019?LATEST DOSE OF PEMETREXED RECE
     Route: 042
     Dates: start: 20191209
  3. CARBOPLATIN [Suspect]
     Active Substance: CARBOPLATIN
     Indication: Non-small cell lung cancer
     Dosage: AUC 5?LATEST DOSE OF CARBOPLATIN RECEIVED PRIOR TO BACTEREMIA ON 09/DEC/2019?LATEST DOSE OF CARBOPLA
     Route: 042
  4. ACETAMINOPHEN [Concomitant]
     Active Substance: ACETAMINOPHEN
     Indication: Pyrexia
     Route: 048
     Dates: start: 20200123, end: 20200130
  5. IPRATROPIUM BROMIDE [Concomitant]
     Active Substance: IPRATROPIUM BROMIDE
     Route: 045
     Dates: start: 20200124
  6. IPRATROPIUM BROMIDE [Concomitant]
     Active Substance: IPRATROPIUM BROMIDE
     Dosage: 2 OTHER
     Dates: start: 20200219, end: 20200219
  7. METOCLOPRAMIDE [Concomitant]
     Active Substance: METOCLOPRAMIDE
     Indication: Vomiting
     Route: 048
     Dates: start: 20200129
  8. FENTANYL [Concomitant]
     Active Substance: FENTANYL
     Indication: Prophylaxis
     Dosage: 600 MCG
     Route: 042
     Dates: start: 20200218, end: 20200219
  9. FENTANYL [Concomitant]
     Active Substance: FENTANYL
     Indication: Pain
     Route: 042
     Dates: start: 20200220
  10. FENTANYL [Concomitant]
     Active Substance: FENTANYL
     Route: 058
     Dates: start: 20200324, end: 20200328
  11. FENTANYL [Concomitant]
     Active Substance: FENTANYL
     Dosage: 25MCG
     Route: 062
     Dates: start: 20200210
  12. FENTANYL [Concomitant]
     Active Substance: FENTANYL
     Dosage: 750MCG
     Route: 042
     Dates: start: 20200219
  13. QUETIAPINE [Concomitant]
     Active Substance: QUETIAPINE
     Indication: Emotional distress
     Route: 048
     Dates: start: 20200217
  14. METHYLPREDNISOLONE [Concomitant]
     Active Substance: METHYLPREDNISOLONE
     Route: 042
     Dates: start: 20200219, end: 20200224
  15. METHYLPREDNISOLONE [Concomitant]
     Active Substance: METHYLPREDNISOLONE
     Route: 042
     Dates: start: 20200224
  16. PIPERACILLIN [Concomitant]
     Active Substance: PIPERACILLIN
     Route: 048
     Dates: start: 20200219, end: 20200224
  17. TAZOBACTAM [Concomitant]
     Active Substance: TAZOBACTAM
     Route: 048
     Dates: start: 20200220, end: 20200228
  18. TAZOBACTAM [Concomitant]
     Active Substance: TAZOBACTAM
     Route: 048
     Dates: start: 20200219, end: 20200224
  19. MOXIFLOXACIN [Concomitant]
     Active Substance: MOXIFLOXACIN
     Route: 048
     Dates: start: 20200228
  20. METAMIZOLE [Concomitant]
     Active Substance: METAMIZOLE
     Route: 048
     Dates: start: 20200313
  21. METAMIZOLE [Concomitant]
     Active Substance: METAMIZOLE
     Route: 048
     Dates: start: 20200210
  22. MORPHINE [Concomitant]
     Active Substance: MORPHINE
     Route: 042
     Dates: start: 20200225
  23. MORPHINE [Concomitant]
     Active Substance: MORPHINE
     Route: 048
     Dates: start: 20200311
  24. POLYETHYLENE GLYCOLS [Concomitant]
     Active Substance: POLYETHYLENE GLYCOLS
     Route: 048
     Dates: start: 20200313

REACTIONS (7)
  - Bacteraemia [Recovered/Resolved]
  - Upper respiratory tract infection [Recovered/Resolved]
  - Ischaemia [Recovered/Resolved with Sequelae]
  - Dyspnoea [Unknown]
  - Tuberculosis [Recovered/Resolved]
  - Pain in extremity [Recovered/Resolved]
  - Cardio-respiratory arrest [Fatal]

NARRATIVE: CASE EVENT DATE: 20191213
